FAERS Safety Report 13903495 (Version 2)
Quarter: 2018Q1

REPORT INFORMATION
  Report Type: Spontaneous
  Country: US (occurrence: US)
  Receive Date: 20170824
  Receipt Date: 20180110
  Transmission Date: 20180508
  Serious: No
  Sender: FDA-Public Use
  Company Number: US-PFIZER INC-2017364978

PATIENT
  Age: 63 Year
  Sex: Female
  Weight: 86 kg

DRUGS (3)
  1. IBRANCE [Suspect]
     Active Substance: PALBOCICLIB
     Indication: BREAST CANCER METASTATIC
     Dosage: 100 MG, CYCLIC (ON FOR 21 DAYS AND OFF FOR 7 DAYS)
     Route: 048
     Dates: start: 201704, end: 20170813
  2. FASLODEX [Concomitant]
     Active Substance: FULVESTRANT
     Indication: SUPPLEMENTATION THERAPY
     Dosage: UNK, MONTHLY
     Dates: start: 201704, end: 201707
  3. FASLODEX [Concomitant]
     Active Substance: FULVESTRANT
     Dosage: UNK
     Dates: start: 201704, end: 201708

REACTIONS (2)
  - Neoplasm progression [Unknown]
  - Expired product administered [Unknown]

NARRATIVE: CASE EVENT DATE: 20170814
